FAERS Safety Report 5224316-4 (Version None)
Quarter: 2007Q1

REPORT INFORMATION
  Report Type: 
  Country: None (occurrence: None)
  Receive Date: 20070130
  Receipt Date: 20070129
  Transmission Date: 20070707
  Serious: Yes (Congenital Anomaly)
  Sender: FDA-Public Use
  Company Number: US-BOEHRINGER INGELHEIM PHARMACEUTICALS, INC.-2006-BP-11768BP

PATIENT
  Sex: Male

DRUGS (6)
  1. VIRAMUNE [Suspect]
     Indication: HIV INFECTION
     Route: 015
  2. TRUVADA [Suspect]
     Indication: HIV INFECTION
     Route: 015
  3. FOSAMPRENIVIR [Suspect]
     Route: 015
  4. NORVIR [Suspect]
     Route: 015
  5. BACTRIM [Concomitant]
  6. PROTONIX [Concomitant]

REACTIONS (1)
  - CLEFT PALATE [None]
